FAERS Safety Report 23157967 (Version 1)
Quarter: 2023Q4

REPORT INFORMATION
  Report Type: Spontaneous
  Country: US (occurrence: US)
  Receive Date: 20231108
  Receipt Date: 20231108
  Transmission Date: 20240110
  Serious: No
  Sender: FDA-Public Use
  Company Number: US-ELI_LILLY_AND_COMPANY-US202310017520

PATIENT
  Sex: Male

DRUGS (3)
  1. MOUNJARO [Suspect]
     Active Substance: TIRZEPATIDE
     Indication: Diabetes mellitus
     Dosage: 7.5 MG, UNKNOWN
     Route: 058
  2. MOUNJARO [Suspect]
     Active Substance: TIRZEPATIDE
     Indication: Diabetes mellitus
     Dosage: 10 MG, UNKNOWN
     Route: 058
  3. MOUNJARO [Suspect]
     Active Substance: TIRZEPATIDE
     Indication: Diabetes mellitus
     Dosage: 15 MG, UNKNOWN
     Route: 058

REACTIONS (11)
  - Accidental overdose [Unknown]
  - Somnolence [Recovering/Resolving]
  - Gastrointestinal sounds abnormal [Recovering/Resolving]
  - Abdominal discomfort [Recovering/Resolving]
  - Food craving [Recovering/Resolving]
  - Selective eating disorder [Recovering/Resolving]
  - Asthenia [Recovered/Resolved]
  - Eructation [Recovering/Resolving]
  - Flatulence [Recovering/Resolving]
  - Decreased appetite [Recovering/Resolving]
  - Diarrhoea [Recovering/Resolving]
